FAERS Safety Report 6209107-X (Version None)
Quarter: 2009Q2

REPORT INFORMATION
  Report Type: 
  Country: None (occurrence: None)
  Receive Date: 20090529
  Receipt Date: 20090522
  Transmission Date: 20091009
  Serious: Yes (Other)
  Sender: FDA-Public Use
  Company Number: CA-WYE-H09460009

PATIENT
  Sex: Female

DRUGS (3)
  1. SIROLIMUS [Suspect]
     Indication: PROPHYLAXIS AGAINST TRANSPLANT REJECTION
     Dosage: DOSE TO MAINTAIN TROUGH LEVELS 12-15 NG/ML
  2. SIROLIMUS [Suspect]
     Dosage: DOSE TO MAINTAIN TROUGH LEVELS 7-10 NG/ML
  3. TACROLIMUS [Suspect]
     Indication: PROPHYLAXIS AGAINST TRANSPLANT REJECTION
     Dosage: TARGET TROUGH LEVEL 3-6 NG/ML

REACTIONS (3)
  - ADVERSE EVENT [None]
  - NO THERAPEUTIC RESPONSE [None]
  - OVARIAN CYST [None]
